FAERS Safety Report 6816287-1 (Version None)
Quarter: 2010Q2

REPORT INFORMATION
  Report Type: 
  Country: None (occurrence: None)
  Receive Date: 20100630
  Receipt Date: 20100505
  Transmission Date: 20101027
  Serious: Yes (Life-Threatening, Hospitalization)
  Sender: FDA-Public Use
  Company Number: MC201000147

PATIENT
  Age: 62 Year
  Sex: Female
  Weight: 97 kg

DRUGS (9)
  1. ANGIOMAX [Suspect]
     Indication: PERCUTANEOUS CORONARY INTERVENTION
     Dosage: 14.85 ML, BOLUS, INTRAVENOUS; 1.75 MG/KG, HR
     Dates: start: 20100503, end: 20100503
  2. ANGIOMAX [Suspect]
     Indication: PERCUTANEOUS CORONARY INTERVENTION
     Dosage: 14.85 ML, BOLUS, INTRAVENOUS; 1.75 MG/KG, HR
     Dates: start: 20100505, end: 20100505
  3. ANGIOMAX [Suspect]
     Indication: PERCUTANEOUS CORONARY INTERVENTION
     Dosage: 14.85 ML, BOLUS, INTRAVENOUS; 1.75 MG/KG, HR
     Dates: start: 20100505, end: 20100505
  4. CONTRAST MEDIA () [Suspect]
     Indication: ULTRASOUND DOPPLER
     Dosage: 110 ML, SINGLE
     Dates: start: 20100505, end: 20100505
  5. NITROGLYCERIN (NITROGLYCERIN HCL) [Concomitant]
  6. NITROGLYCERIN (NITROGLYCERIN HCL) [Concomitant]
  7. VERSED [Concomitant]
  8. PLAVIX [Concomitant]
  9. FENTANYL CITRATE [Concomitant]

REACTIONS (8)
  - ACUTE MYOCARDIAL INFARCTION [None]
  - BRADYCARDIA [None]
  - FEELING HOT [None]
  - FLUSHING [None]
  - LETHARGY [None]
  - SINUS TACHYCARDIA [None]
  - UNRESPONSIVE TO STIMULI [None]
  - VENTRICULAR FIBRILLATION [None]
